FAERS Safety Report 4803501-7 (Version None)
Quarter: 2005Q4

REPORT INFORMATION
  Report Type: 
  Country: None (occurrence: None)
  Receive Date: 20051013
  Receipt Date: 20051005
  Transmission Date: 20060501
  Serious: Yes (Other)
  Sender: FDA-Public Use
  Company Number: 200511481BWH

PATIENT
  Age: 70 Year
  Sex: Male
  Weight: 90.7194 kg

DRUGS (3)
  1. LEVITRA [Suspect]
     Indication: ERECTILE DYSFUNCTION
     Dosage: 10 MG, TOTAL DAILY, ORAL
     Route: 048
     Dates: start: 20040101
  2. PROPOXYPHENE NAPSYLATE W/ ACETAMINOPHEN [Concomitant]
  3. SKELAXIN [Concomitant]

REACTIONS (2)
  - AMNESIA [None]
  - FATIGUE [None]
